FAERS Safety Report 25838154 (Version 1)
Quarter: 2025Q3

REPORT INFORMATION
  Report Type: Report from Study
  Country: CA (occurrence: CA)
  Receive Date: 20250923
  Receipt Date: 20250923
  Transmission Date: 20251021
  Serious: Yes (Other)
  Sender: ALEXION PHARMACEUTICALS
  Company Number: CA-AstraZeneca-CH-00947872A

PATIENT
  Age: 44 Year
  Sex: Female

DRUGS (1)
  1. ULTOMIRIS [Suspect]
     Active Substance: RAVULIZUMAB-CWVZ
     Indication: Antiphospholipid syndrome

REACTIONS (16)
  - Sepsis [Unknown]
  - Cachexia [Unknown]
  - Respiratory distress [Unknown]
  - Haematoma infection [Unknown]
  - Hypoxia [Unknown]
  - Bicytopenia [Unknown]
  - Hypothyroidism [Unknown]
  - Acute cholecystitis necrotic [Unknown]
  - Thrombosis [Unknown]
  - Retroperitoneal haematoma [Unknown]
  - Physical deconditioning [Unknown]
  - Renal mass [Unknown]
  - Dysphagia [Unknown]
  - Decubitus ulcer [Unknown]
  - Blood alkaline phosphatase increased [Unknown]
  - Off label use [Unknown]
